FAERS Safety Report 20326549 (Version 5)
Quarter: 2022Q2

REPORT INFORMATION
  Report Type: Report from Study
  Country: MX (occurrence: MX)
  Receive Date: 20220112
  Receipt Date: 20220613
  Transmission Date: 20220721
  Serious: Yes (Other)
  Sender: FDA-Public Use
  Company Number: MX-NOVARTISPH-NVSC2022MX003699

PATIENT
  Age: 68 Year
  Sex: Male
  Weight: 103 kg

DRUGS (1)
  1. TASIGNA [Suspect]
     Active Substance: NILOTINIB
     Indication: Chronic myeloid leukaemia
     Dosage: UNK
     Route: 048
     Dates: start: 20191101

REACTIONS (9)
  - Facial paralysis [Unknown]
  - Speech disorder [Not Recovered/Not Resolved]
  - Anal abscess [Recovering/Resolving]
  - Proctalgia [Unknown]
  - Anorectal discomfort [Unknown]
  - Dyschezia [Unknown]
  - Constipation [Unknown]
  - Feeling abnormal [Unknown]
  - Pain [Unknown]

NARRATIVE: CASE EVENT DATE: 20220101
